FAERS Safety Report 18177872 (Version 2)
Quarter: 2020Q3

REPORT INFORMATION
  Report Type: Spontaneous
  Country: US (occurrence: US)
  Receive Date: 20200821
  Receipt Date: 20200828
  Transmission Date: 20201103
  Serious: Yes (Hospitalization, Other)
  Sender: FDA-Public Use
  Company Number: US-PFIZER INC-2020322953

PATIENT
  Age: 78 Year
  Sex: Female
  Weight: 67.59 kg

DRUGS (2)
  1. AROMASIN [Suspect]
     Active Substance: EXEMESTANE
     Indication: BREAST CANCER
     Dosage: 25 MG, DAILY
     Route: 048
     Dates: start: 2017
  2. METFORMIN [Concomitant]
     Active Substance: METFORMIN HYDROCHLORIDE
     Indication: DIABETES MELLITUS
     Dosage: 1000 MG, DAILY (TAKE TWO TABLETS DAILY BY MOUTH)
     Route: 048
     Dates: start: 2013

REACTIONS (1)
  - Biliary obstruction [Recovered/Resolved with Sequelae]

NARRATIVE: CASE EVENT DATE: 20200730
